FAERS Safety Report 8309718-1 (Version None)
Quarter: 2012Q2

REPORT INFORMATION
  Report Type: 
  Country: None (occurrence: None)
  Receive Date: 20120425
  Receipt Date: 20120420
  Transmission Date: 20120825
  Serious: No
  Sender: FDA-Public Use
  Company Number: US-PFIZER INC-2012082194

PATIENT
  Sex: Female
  Weight: 60.771 kg

DRUGS (5)
  1. PRISTIQ [Suspect]
     Indication: LETHARGY
  2. PRISTIQ [Suspect]
     Indication: PSYCHIATRIC SYMPTOM
  3. PRISTIQ [Suspect]
     Indication: DEPRESSED MOOD
     Dosage: 50 MG, 1X/DAY
     Route: 048
     Dates: start: 20100101
  4. PRISTIQ [Suspect]
     Indication: DEPRESSION
  5. CRESTOR [Concomitant]
     Indication: BLOOD CHOLESTEROL INCREASED
     Dosage: 5 MG, UNK

REACTIONS (2)
  - WEIGHT INCREASED [None]
  - INCREASED APPETITE [None]
